FAERS Safety Report 10877632 (Version 1)
Quarter: 2015Q1

REPORT INFORMATION
  Report Type: Spontaneous
  Country: US (occurrence: None)
  Receive Date: 20150224
  Receipt Date: 20150224
  Transmission Date: 20150721
  Serious: No
  Sender: FDA-Public Use
  Company Number: 2015-00025

PATIENT
  Age: 87 Year
  Sex: Female

DRUGS (6)
  1. ZICAM COLD REMEDY NASAL GEL [Suspect]
     Active Substance: ZINC ACETATE\ZINC GLUCONATE
     Indication: NASOPHARYNGITIS
     Dosage: SPRAYED NASALLY X NOS
     Route: 045
     Dates: start: 2013
  2. ZICAM COLD REMEDY NASAL GEL [Suspect]
     Active Substance: ZINC ACETATE\ZINC GLUCONATE
     Indication: INFLUENZA
     Dosage: SPRAYED NASALLY X NOS
     Route: 045
     Dates: start: 2013
  3. CRESTOR [Concomitant]
     Active Substance: ROSUVASTATIN CALCIUM
  4. ASPIRIN. [Concomitant]
     Active Substance: ASPIRIN
  5. SYNTHROID [Concomitant]
     Active Substance: LEVOTHYROXINE SODIUM
  6. FISH OIL SUPPLEMENT [Concomitant]

REACTIONS (2)
  - Anosmia [None]
  - Parosmia [None]

NARRATIVE: CASE EVENT DATE: 2013
